FAERS Safety Report 7029495-4 (Version None)
Quarter: 2010Q4

REPORT INFORMATION
  Report Type: 
  Country: None (occurrence: None)
  Receive Date: 20101005
  Receipt Date: 20100927
  Transmission Date: 20110411
  Serious: Yes (Other)
  Sender: FDA-Public Use
  Company Number: US-AMGEN-KDL439249

PATIENT
  Sex: Female
  Weight: 66.3 kg

DRUGS (5)
  1. ENBREL [Suspect]
     Indication: RHEUMATOID ARTHRITIS
     Route: 058
     Dates: start: 19990612
  2. CELEBREX [Concomitant]
     Route: 048
     Dates: start: 20070201
  3. LORATADINE [Concomitant]
     Route: 048
     Dates: start: 20050101
  4. LISINOPRIL AND HYDROCHLOROTHIAZIDE [Concomitant]
     Route: 048
     Dates: start: 20050101
  5. CYMBALTA [Concomitant]
     Route: 048
     Dates: start: 20100601

REACTIONS (6)
  - BRONCHITIS [None]
  - DYSLIPIDAEMIA [None]
  - HYPOTHYROIDISM [None]
  - JOINT STIFFNESS [None]
  - SINUSITIS [None]
  - TEMPOROMANDIBULAR JOINT SYNDROME [None]
